FAERS Safety Report 9189809 (Version 1)
Quarter: 2013Q1

REPORT INFORMATION
  Report Type: Spontaneous
  Country: US (occurrence: None)
  Receive Date: 20120703
  Receipt Date: 20120703
  Transmission Date: 20140127
  Serious: No
  Sender: FDA-Public Use
  Company Number: PHEH2012US008063

PATIENT
  Age: 38 Year
  Sex: Male
  Weight: 32.93 kg

DRUGS (6)
  1. FAMPRIDINE (FAMPRIDINE), 10MG [Concomitant]
  2. GILENYA [Suspect]
     Indication: MULTIPLE SCLEROSIS
     Route: 048
     Dates: start: 201202
  3. CYMBALTA (DULOXETINE HYDROCHLORIDE) CAPSULE, 60MG [Concomitant]
  4. CIALIS (TADALAFIL) TABLET, 2MG [Concomitant]
  5. ZOLPIDEM TARTRATE (ZOLPIDEM TARTRATE) TABLET 10MG [Concomitant]
  6. BEHTANECHOL (BETHANECHOL) TABLET, 25 MG [Concomitant]

REACTIONS (3)
  - Nasal congestion [None]
  - Weight decreased [None]
  - Dizziness [None]
